FAERS Safety Report 10239103 (Version 1)
Quarter: 2014Q2

REPORT INFORMATION
  Report Type: Spontaneous
  Country: US (occurrence: US)
  Receive Date: 20140616
  Receipt Date: 20140616
  Transmission Date: 20141212
  Serious: No
  Sender: FDA-Public Use
  Company Number: US-PFIZER INC-2014163190

PATIENT
  Sex: Male

DRUGS (2)
  1. XANAX [Suspect]
     Indication: SLEEP DISORDER
     Dosage: UNK
  2. XANAX [Suspect]
     Indication: ANAL SPASM

REACTIONS (2)
  - Therapeutic response changed [Unknown]
  - Pre-existing condition improved [Unknown]
